FAERS Safety Report 5281182-9 (Version None)
Quarter: 2007Q1

REPORT INFORMATION
  Report Type: 
  Country: None (occurrence: None)
  Receive Date: 20070323
  Receipt Date: 20070316
  Transmission Date: 20070707
  Serious: Yes (Other)
  Sender: FDA-Public Use
  Company Number: SP01131

PATIENT
  Age: 78 Year
  Sex: Female
  Weight: 50 kg

DRUGS (5)
  1. MOVIPREP [Suspect]
     Indication: COLONOSCOPY
     Dosage: 2 LIT, ORAL
     Route: 048
     Dates: start: 20070201, end: 20070201
  2. SALOFALK [Concomitant]
  3. GANCICLOVIR [Concomitant]
  4. LOPEDIUM [Concomitant]
  5. NUTRIFLEX [Concomitant]

REACTIONS (2)
  - DEHYDRATION [None]
  - DRUG EFFECT DECREASED [None]
